FAERS Safety Report 16119986 (Version 10)
Quarter: 2020Q4

REPORT INFORMATION
  Report Type: Report from Study
  Country: US (occurrence: US)
  Receive Date: 20190326
  Receipt Date: 20201102
  Transmission Date: 20210113
  Serious: Yes (Death, Life-Threatening, Other)
  Sender: FDA-Public Use
  Company Number: PHHY2018US201269

PATIENT
  Age: 5 Year
  Sex: Male

DRUGS (4)
  1. CYCLOPHOSPHAMIDE. [Concomitant]
     Active Substance: CYCLOPHOSPHAMIDE
     Indication: CHEMOTHERAPY
     Dosage: UNK
     Route: 065
  2. KYMRIAH [Suspect]
     Active Substance: TISAGENLECLEUCEL
     Indication: ACUTE LYMPHOCYTIC LEUKAEMIA
     Dosage: ONCE/SINGLE
     Route: 041
     Dates: start: 20180306
  3. KYMRIAH [Suspect]
     Active Substance: TISAGENLECLEUCEL
     Dosage: UNK
     Route: 065
     Dates: start: 20181127
  4. FLUDARABINE [Concomitant]
     Active Substance: FLUDARABINE PHOSPHATE
     Indication: CHEMOTHERAPY
     Route: 065

REACTIONS (19)
  - White blood cell count decreased [Unknown]
  - Lymphocyte count decreased [Unknown]
  - Off label use [Unknown]
  - Hemiparesis [Unknown]
  - Paraparesis [Unknown]
  - Gastrointestinal infection [Unknown]
  - Haemoglobin decreased [Unknown]
  - Acute lymphocytic leukaemia [Fatal]
  - Motor dysfunction [Unknown]
  - Malignant neoplasm progression [Fatal]
  - Pyrexia [Recovered/Resolved]
  - Neutrophil count decreased [Unknown]
  - Headache [Recovered/Resolved]
  - Treatment failure [Unknown]
  - Cytokine release syndrome [Recovered/Resolved]
  - Platelet count decreased [Unknown]
  - Acute lymphocytic leukaemia recurrent [Fatal]
  - Neurotoxicity [Recovered/Resolved]
  - Clostridium difficile infection [Unknown]
